FAERS Safety Report 4851611-0 (Version None)
Quarter: 2005Q4

REPORT INFORMATION
  Report Type: 
  Country: None (occurrence: None)
  Receive Date: 20051212
  Receipt Date: 20051005
  Transmission Date: 20060501
  Serious: Yes (Hospitalization)
  Sender: FDA-Public Use
  Company Number: US-MERCK-0510USA04678

PATIENT
  Age: 64 Year
  Sex: Female
  Weight: 64 kg

DRUGS (4)
  1. VIOXX [Suspect]
     Indication: PAIN
     Route: 048
     Dates: start: 20000803, end: 20010821
  2. OXAZEPAM [Concomitant]
     Route: 065
  3. REMERON [Concomitant]
     Route: 065
  4. ATENOLOL [Concomitant]
     Route: 065

REACTIONS (5)
  - ACCIDENT [None]
  - CEREBROVASCULAR ACCIDENT [None]
  - DIFFICULTY IN WALKING [None]
  - HAEMORRHAGE [None]
  - HYPERTENSION [None]
